FAERS Safety Report 21059753 (Version 2)
Quarter: 2022Q3

REPORT INFORMATION
  Report Type: Spontaneous
  Country: US (occurrence: US)
  Receive Date: 20220708
  Receipt Date: 20220915
  Transmission Date: 20221026
  Serious: No
  Sender: FDA-Public Use
  Company Number: US-KARYOPHARM-2022KPT000726

PATIENT

DRUGS (15)
  1. XPOVIO [Suspect]
     Active Substance: SELINEXOR
     Indication: Plasma cell myeloma
     Dosage: 60 MG, WEEKLY
     Route: 048
     Dates: start: 20220624, end: 20220729
  2. ACYCLOVIR [Concomitant]
     Active Substance: ACYCLOVIR
  3. BACLOFEN [Concomitant]
     Active Substance: BACLOFEN
  4. BACTRIM [Concomitant]
     Active Substance: SULFAMETHOXAZOLE\TRIMETHOPRIM
  5. DICLOFENAC [Concomitant]
     Active Substance: DICLOFENAC
  6. DOXYCYCLINE [Concomitant]
     Active Substance: DOXYCYCLINE
  7. LASIX [Concomitant]
     Active Substance: FUROSEMIDE
  8. LORAZEPAM [Concomitant]
     Active Substance: LORAZEPAM
  9. OLANZAPINE [Concomitant]
     Active Substance: OLANZAPINE
  10. OXYCODONE [Concomitant]
     Active Substance: OXYCODONE
  11. POTASSIUM CHLORIDE [Concomitant]
     Active Substance: POTASSIUM CHLORIDE
  12. PROCHLORPERAZINE [Concomitant]
     Active Substance: PROCHLORPERAZINE
  13. ZOFRAN [Concomitant]
     Active Substance: ONDANSETRON HYDROCHLORIDE
  14. DEXAMETHASONE [Concomitant]
     Active Substance: DEXAMETHASONE
  15. MUPIROCIN [Concomitant]
     Active Substance: MUPIROCIN

REACTIONS (2)
  - Nausea [Not Recovered/Not Resolved]
  - Drug ineffective [Unknown]

NARRATIVE: CASE EVENT DATE: 20220624
